FAERS Safety Report 20155405 (Version 1)
Quarter: 2021Q4

REPORT INFORMATION
  Report Type: Spontaneous
  Country: US (occurrence: US)
  Receive Date: 20211207
  Receipt Date: 20211207
  Transmission Date: 20220303
  Serious: No
  Sender: FDA-Public Use
  Company Number: US-drreddys-SPO/USA/21/0144415

PATIENT
  Age: 28 Year
  Sex: Female

DRUGS (3)
  1. ACCUTANE [Suspect]
     Active Substance: ISOTRETINOIN
     Indication: Product used for unknown indication
     Dosage: RMA ISSUE DATE: 15 OCTOBER 2021 5:53:37 PM.
  2. ZENATANE [Suspect]
     Active Substance: ISOTRETINOIN
     Indication: Product used for unknown indication
     Dosage: RMA ISSUE DATE: 30 NOVEMBER 2020 3:56:54 PM, 12 APRIL 2021 9:00:23 AM AND 8 JULY 2021 2:31:33 PM
  3. ZENATANE [Suspect]
     Active Substance: ISOTRETINOIN
     Dosage: RMA ISSUE DATE: 31 DECEMBER 2020 1:55:37 PM, 17 FEBRUARY 2021 1:51:00 PM AND 28 MAY 2021 2:31:02 PM.

REACTIONS (1)
  - Dry skin [Unknown]
